FAERS Safety Report 9458364 (Version 1)
Quarter: 2013Q3

REPORT INFORMATION
  Report Type: Spontaneous
  Country: BR (occurrence: BR)
  Receive Date: 20130814
  Receipt Date: 20130814
  Transmission Date: 20140515
  Serious: Yes (Other)
  Sender: FDA-Public Use
  Company Number: BR-PFIZER INC-2013232433

PATIENT
  Age: 57 Year
  Sex: Male

DRUGS (1)
  1. LIPITOR [Suspect]
     Indication: BLOOD CHOLESTEROL ABNORMAL
     Dosage: 20 MG (ONE TABLET) DAILY
     Route: 048
     Dates: start: 20050808, end: 201302

REACTIONS (4)
  - Drug administration error [Unknown]
  - Cerebrovascular accident [Unknown]
  - Blood glucose decreased [Unknown]
  - Blood pressure increased [Unknown]
